FAERS Safety Report 9881957 (Version 2)
Quarter: 2014Q1

REPORT INFORMATION
  Report Type: Spontaneous
  Country: US (occurrence: US)
  Receive Date: 20140207
  Receipt Date: 20140303
  Transmission Date: 20141002
  Serious: Yes (Other)
  Sender: FDA-Public Use
  Company Number: US-BRISTOL-MYERS SQUIBB COMPANY-20107884

PATIENT
  Sex: Female

DRUGS (1)
  1. ABILIFY INJECTION [Suspect]

REACTIONS (4)
  - Abortion spontaneous [Unknown]
  - Pregnancy [Unknown]
  - Injection site haemorrhage [Unknown]
  - Aggression [Unknown]
